FAERS Safety Report 10074010 (Version 1)
Quarter: 2014Q2

REPORT INFORMATION
  Report Type: Spontaneous
  Country: US (occurrence: US)
  Receive Date: 20140413
  Receipt Date: 20140413
  Transmission Date: 20141212
  Serious: Yes (Other)
  Sender: FDA-Public Use
  Company Number: US-MYLANLABS-2014S1007768

PATIENT
  Age: 76 Year
  Sex: Female

DRUGS (4)
  1. HYDRALAZINE [Suspect]
     Indication: HYPERTENSION
     Route: 065
  2. AMLODIPINE [Concomitant]
     Indication: HYPERTENSION
     Route: 065
  3. LISINOPRIL [Concomitant]
     Route: 065
  4. HYDROCHLOROTHIAZIDE [Concomitant]
     Route: 065

REACTIONS (3)
  - Anti-neutrophil cytoplasmic antibody positive vasculitis [Recovering/Resolving]
  - Glomerulonephritis [Recovering/Resolving]
  - Lupus-like syndrome [Unknown]
